FAERS Safety Report 5339449-1 (Version None)
Quarter: 2007Q2

REPORT INFORMATION
  Report Type: 
  Country: None (occurrence: None)
  Receive Date: 20070525
  Receipt Date: 20070518
  Transmission Date: 20071010
  Serious: Yes (Hospitalization)
  Sender: FDA-Public Use
  Company Number: CAP07000223

PATIENT
  Sex: Female

DRUGS (2)
  1. ETIDRONATE DISODIUM [Suspect]
     Dosage: 1 TABLET ONE DAILY, ORAL
     Route: 048
  2. WARFARIN SODIUM [Suspect]

REACTIONS (4)
  - DIZZINESS [None]
  - FALL [None]
  - LOSS OF CONSCIOUSNESS [None]
  - SYNCOPE [None]
